FAERS Safety Report 21568670 (Version 1)
Quarter: 2022Q4

REPORT INFORMATION
  Report Type: Report from Study
  Country: CA (occurrence: CA)
  Receive Date: 20221108
  Receipt Date: 20221108
  Transmission Date: 20230113
  Serious: Yes (Death)
  Sender: FDA-Public Use
  Company Number: CA-002147023-PHHY2016CA042293

PATIENT

DRUGS (13)
  1. RUXOLITINIB [Suspect]
     Active Substance: RUXOLITINIB
     Indication: Polycythaemia vera
     Dosage: 10 MG, BID
     Route: 048
     Dates: start: 20160323
  2. RUXOLITINIB [Suspect]
     Active Substance: RUXOLITINIB
     Dosage: 15 MG, BID
     Route: 048
  3. RUXOLITINIB [Suspect]
     Active Substance: RUXOLITINIB
     Dosage: 10 MG, BID
     Route: 048
  4. RUXOLITINIB [Suspect]
     Active Substance: RUXOLITINIB
     Dosage: 5 MG, BID
     Route: 048
  5. RUXOLITINIB [Suspect]
     Active Substance: RUXOLITINIB
     Dosage: 15 MG, QD (10 MG IN THE MORNING 5MG IN THE EVENING)
     Route: 048
  6. RUXOLITINIB [Suspect]
     Active Substance: RUXOLITINIB
     Dosage: 10 MG, BID
     Route: 048
  7. RUXOLITINIB [Suspect]
     Active Substance: RUXOLITINIB
     Dosage: 15 MG, QD (10 MG QAM AND 5 MG QPM)
     Route: 048
  8. RUXOLITINIB [Suspect]
     Active Substance: RUXOLITINIB
     Dosage: 25 MG, QD (15 MG QAM AND 10MG QPM)
     Route: 048
  9. RUXOLITINIB [Suspect]
     Active Substance: RUXOLITINIB
     Dosage: 15 MG, BID (15 MG QAM AND 15 MG QPM)
     Route: 048
  10. RUXOLITINIB [Suspect]
     Active Substance: RUXOLITINIB
     Dosage: 10 MG, BID
     Route: 048
  11. ASPIRIN [Concomitant]
     Active Substance: ASPIRIN
     Indication: Product used for unknown indication
     Dosage: UNK
     Route: 065
  12. LOSEC [Concomitant]
     Active Substance: OMEPRAZOLE
     Indication: Product used for unknown indication
     Dosage: UNK
     Route: 065
  13. ASPIRIN [Concomitant]
     Active Substance: ASPIRIN
     Indication: Product used for unknown indication
     Dosage: 81 MG, UNK
     Route: 065

REACTIONS (40)
  - Back pain [Recovering/Resolving]
  - Back disorder [Unknown]
  - Full blood count decreased [Unknown]
  - Chills [Unknown]
  - Cystitis [Unknown]
  - Dizziness [Unknown]
  - Swelling face [Unknown]
  - Eating disorder [Unknown]
  - Asthenia [Unknown]
  - Nasopharyngitis [Unknown]
  - Fatigue [Unknown]
  - Fatigue [Recovered/Resolved]
  - Pyrexia [Unknown]
  - Alopecia [Unknown]
  - Headache [Unknown]
  - Heart rate increased [Unknown]
  - Haemoglobin decreased [Unknown]
  - Tooth infection [Unknown]
  - Mass [Unknown]
  - Pain [Unknown]
  - Nausea [Unknown]
  - Neck pain [Unknown]
  - Decreased appetite [Unknown]
  - Malaise [Unknown]
  - Oral pain [Unknown]
  - Death [Fatal]
  - Platelet count decreased [Unknown]
  - Weight increased [Unknown]
  - Red blood cell count increased [Unknown]
  - Red blood cell count decreased [Recovering/Resolving]
  - Nervousness [Unknown]
  - Diarrhoea [Unknown]
  - Dyspnoea [Unknown]
  - Pain in extremity [Unknown]
  - Abdominal distension [Unknown]
  - Peripheral swelling [Unknown]
  - Vomiting [Unknown]
  - White blood cell count increased [Unknown]
  - Tremor [Unknown]
  - Nail infection [Unknown]

NARRATIVE: CASE EVENT DATE: 20160327
